FAERS Safety Report 18313751 (Version 1)
Quarter: 2020Q3

REPORT INFORMATION
  Report Type: Spontaneous
  Country: US (occurrence: US)
  Receive Date: 20200925
  Receipt Date: 20200925
  Transmission Date: 20201103
  Serious: No
  Sender: FDA-Public Use
  Company Number: US-BAYER-2020-202730

PATIENT
  Age: 77 Year
  Sex: Male

DRUGS (8)
  1. BAYER LOW DOSE [Suspect]
     Active Substance: ASPIRIN
     Dosage: 1 DF, QD
  2. TRAVOPROST. [Concomitant]
     Active Substance: TRAVOPROST
     Dosage: 2 GTT
     Route: 047
  3. AMLODIPINE BENAZEPRIL [Concomitant]
     Active Substance: AMLODIPINE BESYLATE\BENAZEPRIL HYDROCHLORIDE
     Dosage: 1 DF, QD
  4. LOTRIMIN ULTRA [Suspect]
     Active Substance: BUTENAFINE HYDROCHLORIDE
     Indication: THERAPEUTIC SKIN CARE TOPICAL
     Dosage: ONCE A DAY, HS
     Route: 061
     Dates: start: 20200916, end: 20200917
  5. OSCAL [CALCITRIOL] [Concomitant]
  6. CARVEDILOL. [Concomitant]
     Active Substance: CARVEDILOL
     Dosage: 1 DF, HS
  7. MINERALS NOS;VITAMINS NOS [Concomitant]
     Active Substance: MINERALS\VITAMINS
  8. ATORVASTATIN [Concomitant]
     Active Substance: ATORVASTATIN
     Dosage: 1 DF, HS

REACTIONS (5)
  - Incorrect dose administered [Unknown]
  - Inappropriate schedule of product administration [None]
  - Abdominal pain upper [Not Recovered/Not Resolved]
  - Incorrect dose administered [None]
  - Pollakiuria [Unknown]

NARRATIVE: CASE EVENT DATE: 20200916
